FAERS Safety Report 4371105-9 (Version None)
Quarter: 2004Q2

REPORT INFORMATION
  Report Type: 
  Country: None (occurrence: None)
  Receive Date: 20040601
  Receipt Date: 20040525
  Transmission Date: 20050107
  Serious: Yes (Hospitalization)
  Sender: FDA-Public Use
  Company Number: 2004-05-1885

PATIENT
  Age: 68 Year
  Sex: Male

DRUGS (1)
  1. INTRON A [Suspect]
     Indication: MALIGNANT MELANOMA
     Dosage: 20 MIU/M^2 INTRAVENOUS
     Route: 042

REACTIONS (3)
  - HAEMATOCHEZIA [None]
  - PYREXIA [None]
  - SEPTIC SHOCK [None]
